FAERS Safety Report 4996638-3 (Version None)
Quarter: 2006Q2

REPORT INFORMATION
  Report Type: 
  Country: None (occurrence: None)
  Receive Date: 20060509
  Receipt Date: 20060504
  Transmission Date: 20061013
  Serious: Yes (Other)
  Sender: FDA-Public Use
  Company Number: US-JNJFOC-20060501605

PATIENT

DRUGS (1)
  1. LEVAQUIN [Suspect]
     Route: 042

REACTIONS (2)
  - ELECTROCARDIOGRAM ABNORMAL [None]
  - ELECTROCARDIOGRAM QT CORRECTED INTERVAL [None]
